FAERS Safety Report 19619568 (Version 1)
Quarter: 2021Q3

REPORT INFORMATION
  Report Type: Spontaneous
  Country: US (occurrence: US)
  Receive Date: 20210727
  Receipt Date: 20210727
  Transmission Date: 20211014
  Serious: No
  Sender: FDA-Public Use
  Company Number: None

PATIENT
  Age: 29 Year
  Sex: Male
  Weight: 71 kg

DRUGS (2)
  1. BUPIVACAINE (BUPIVACAINE HCL 0.5% INJ) [Suspect]
     Active Substance: BUPIVACAINE HYDROCHLORIDE
     Indication: ANAESTHESIA PROCEDURE
     Route: 042
     Dates: start: 20210616, end: 20210616
  2. LIDOCAINE (LIDOCAINE HCL 2% INJ) [Suspect]
     Active Substance: LIDOCAINE HYDROCHLORIDE
     Indication: ANAESTHESIA PROCEDURE
     Route: 042
     Dates: start: 20210616, end: 20210616

REACTIONS (5)
  - Feeling hot [None]
  - Hyperhidrosis [None]
  - Dizziness [None]
  - Nausea [None]
  - Blood pressure decreased [None]
